FAERS Safety Report 10249001 (Version 1)
Quarter: 2014Q2

REPORT INFORMATION
  Report Type: Spontaneous
  Country: US (occurrence: None)
  Receive Date: 20140618
  Receipt Date: 20140618
  Transmission Date: 20141212
  Serious: Yes (Other)
  Sender: FDA-Public Use
  Company Number: None

PATIENT
  Age: 39 Year
  Sex: Female
  Weight: 104.78 kg

DRUGS (1)
  1. BOTOX [Suspect]
     Indication: MIGRAINE
     Dates: start: 20140502

REACTIONS (2)
  - Syncope [None]
  - Speech disorder [None]
